FAERS Safety Report 7257018-3 (Version None)
Quarter: 2011Q1

REPORT INFORMATION
  Report Type: 
  Country: None (occurrence: None)
  Receive Date: 20110129
  Receipt Date: 20100729
  Transmission Date: 20110831
  Serious: No
  Sender: FDA-Public Use
  Company Number: US-ABBOTT-10P-163-0660608-00

PATIENT
  Age: 24 Year
  Sex: Female

DRUGS (3)
  1. ZYRTEC [Concomitant]
     Indication: SEASONAL ALLERGY
     Route: 048
  2. HUMIRA [Suspect]
     Indication: PSORIASIS
     Dates: start: 20090701
  3. LUTERA-28 [Concomitant]
     Indication: CONTRACEPTION

REACTIONS (4)
  - MEMORY IMPAIRMENT [None]
  - DRUG DOSE OMISSION [None]
  - INAPPROPRIATE SCHEDULE OF DRUG ADMINISTRATION [None]
  - PSORIASIS [None]
